FAERS Safety Report 24748308 (Version 1)
Quarter: 2024Q4

REPORT INFORMATION
  Report Type: Spontaneous
  Country: US (occurrence: US)
  Receive Date: 20241218
  Receipt Date: 20241218
  Transmission Date: 20250115
  Serious: Yes (Other)
  Sender: SANOFI AVENTIS
  Company Number: US-DialogSolutions-SAAVPROD-PI713613-C1

PATIENT
  Age: 64 Year
  Sex: Male

DRUGS (2)
  1. ALEMTUZUMAB [Suspect]
     Active Substance: ALEMTUZUMAB
     Indication: T-cell prolymphocytic leukaemia
  2. LENALIDOMIDE;ROMIDEPSIN [Concomitant]
     Indication: T-cell prolymphocytic leukaemia

REACTIONS (3)
  - Myelosuppression [Unknown]
  - Cytomegalovirus infection reactivation [Unknown]
  - Off label use [Unknown]
